FAERS Safety Report 7892983-2 (Version None)
Quarter: 2011Q4

REPORT INFORMATION
  Report Type: 
  Country: None (occurrence: None)
  Receive Date: 20111104
  Receipt Date: 20111026
  Transmission Date: 20120403
  Serious: Yes (Hospitalization)
  Sender: FDA-Public Use
  Company Number: NO-ASTRAZENECA-2011SE64947

PATIENT
  Age: 26805 Day
  Sex: Female

DRUGS (9)
  1. PANTOPRAZOLE [Concomitant]
     Route: 048
  2. PLAVIX [Suspect]
     Route: 048
     Dates: start: 20111027, end: 20111027
  3. LIPITOR [Concomitant]
     Indication: MYOCARDIAL INFARCTION
     Route: 048
  4. LISINOPRIL [Concomitant]
     Indication: MYOCARDIAL INFARCTION
     Route: 048
  5. PLAVIX [Suspect]
     Indication: CORONARY ARTERY DISEASE
     Route: 048
     Dates: start: 20111020, end: 20111024
  6. PREDNISONE [Suspect]
     Indication: RHEUMATOID ARTHRITIS
     Route: 048
  7. PANTOPRAZOLE [Concomitant]
     Indication: GASTROINTESTINAL HAEMORRHAGE
     Route: 048
  8. ASPIRIN [Suspect]
     Route: 048
  9. METOPROLOL TARTRATE [Concomitant]
     Indication: MYOCARDIAL INFARCTION
     Route: 048

REACTIONS (1)
  - GASTRIC ULCER [None]
